FAERS Safety Report 12257266 (Version 18)
Quarter: 2018Q3

REPORT INFORMATION
  Report Type: Spontaneous
  Country: US (occurrence: US)
  Receive Date: 20160412
  Receipt Date: 20180926
  Transmission Date: 20181010
  Serious: Yes (Hospitalization, Disabling)
  Sender: FDA-Public Use
  Company Number: US-ACTELION PHARMACEUTICALS US, INC.-A-US2016-132869

PATIENT
  Age: 45 Year
  Sex: Female

DRUGS (49)
  1. ORENITRAM [Suspect]
     Active Substance: TREPROSTINIL
     Dosage: 4 MG, UNK
     Route: 065
  2. ASPIRIN. [Concomitant]
     Active Substance: ASPIRIN
     Dosage: UNK
  3. IMODIUM A?D [Concomitant]
     Active Substance: LOPERAMIDE HYDROCHLORIDE
  4. ORENITRAM [Suspect]
     Active Substance: TREPROSTINIL
     Dosage: UNK
     Route: 048
     Dates: end: 20160326
  5. HEPARIN [Concomitant]
     Active Substance: HEPARIN SODIUM
     Dosage: UNK
  6. SERTRALINE [Concomitant]
     Active Substance: SERTRALINE HYDROCHLORIDE
  7. TYLENOL [Concomitant]
     Active Substance: ACETAMINOPHEN
  8. PREGABALIN. [Concomitant]
     Active Substance: PREGABALIN
  9. TRIAMCINOLONE [Concomitant]
     Active Substance: TRIAMCINOLONE
     Route: 061
  10. GABAPENTIN. [Concomitant]
     Active Substance: GABAPENTIN
     Dosage: 300 MG, UNK
  11. VALIUM [Concomitant]
     Active Substance: DIAZEPAM
  12. ECOTRIN [Concomitant]
     Active Substance: ASPIRIN
  13. ZOLPIDEM [Concomitant]
     Active Substance: ZOLPIDEM\ZOLPIDEM TARTRATE
  14. PLAQUENIL [Concomitant]
     Active Substance: HYDROXYCHLOROQUINE SULFATE
  15. NORCO [Concomitant]
     Active Substance: ACETAMINOPHEN\HYDROCODONE BITARTRATE
  16. ASPIRIN. [Concomitant]
     Active Substance: ASPIRIN
     Dosage: 81 MG, UNK
  17. HYDROCODONE BITARTRATE AND ACETAMINOPHEN [Concomitant]
     Active Substance: ACETAMINOPHEN\HYDROCODONE BITARTRATE
     Dosage: 10?325 MG
  18. ORENITRAM [Suspect]
     Active Substance: TREPROSTINIL
     Dosage: 4.625 UNK, UNK
     Route: 065
  19. PANTOPRAZOLE [Concomitant]
     Active Substance: PANTOPRAZOLE
     Dosage: UNK
  20. PNEUMOCOCCAL VACCINE POLYVALENT NOS [Concomitant]
     Active Substance: PNEUMOCOCCAL VACCINE POLYVALENT
  21. NABUMETONE. [Concomitant]
     Active Substance: NABUMETONE
  22. REMERON [Concomitant]
     Active Substance: MIRTAZAPINE
  23. PROCHLORPERAZINE. [Concomitant]
     Active Substance: PROCHLORPERAZINE
  24. OPSUMIT [Suspect]
     Active Substance: MACITENTAN
     Indication: PULMONARY ARTERIAL HYPERTENSION
     Dosage: 10 MG, QD
     Route: 048
     Dates: start: 20160223
  25. HYDROCODONE [Concomitant]
     Active Substance: HYDROCODONE
  26. RANITIDINE. [Concomitant]
     Active Substance: RANITIDINE
     Dosage: 150 MG, UNK
  27. ONDANSETRON [Concomitant]
     Active Substance: ONDANSETRON
  28. IMODIUM [Concomitant]
     Active Substance: LOPERAMIDE HYDROCHLORIDE
     Dosage: 2 MG, UNK
  29. FORMOTEROL [Concomitant]
     Active Substance: FORMOTEROL
  30. VENTOLIN HFA [Concomitant]
     Active Substance: ALBUTEROL SULFATE
  31. METOCLOPRAMIDE. [Concomitant]
     Active Substance: METOCLOPRAMIDE
  32. ORENITRAM [Suspect]
     Active Substance: TREPROSTINIL
     Dosage: 0.875 MG, TID
     Route: 048
     Dates: start: 20160329
  33. REMODULIN [Suspect]
     Active Substance: TREPROSTINIL
     Indication: PRODUCT USED FOR UNKNOWN INDICATION
     Dosage: 1 MG/ML, UNK
     Route: 065
  34. MIRTAZAPINE. [Concomitant]
     Active Substance: MIRTAZAPINE
     Dosage: 7.5 MG, UNK
  35. CLINDAMYCIN. [Concomitant]
     Active Substance: CLINDAMYCIN
  36. LORAZEPAM. [Concomitant]
     Active Substance: LORAZEPAM
  37. MECLIZINE [Concomitant]
     Active Substance: MECLIZINE HYDROCHLORIDE
  38. DULERA [Concomitant]
     Active Substance: FORMOTEROL FUMARATE DIHYDRATE\MOMETASONE FUROATE
  39. ESCITALOPRAM [Concomitant]
     Active Substance: ESCITALOPRAM OXALATE
  40. ORENITRAM [Suspect]
     Active Substance: TREPROSTINIL
     Indication: PRODUCT USED FOR UNKNOWN INDICATION
     Dosage: 1 MG, TID
     Route: 048
     Dates: start: 20160326, end: 20160328
  41. FUROSEMIDE. [Concomitant]
     Active Substance: FUROSEMIDE
     Dosage: UNK
  42. PREDNISONE. [Concomitant]
     Active Substance: PREDNISONE
     Dosage: 10 MG, UNK
  43. MULTIVITAMIN [Concomitant]
     Active Substance: VITAMINS
  44. ORENITRAM [Suspect]
     Active Substance: TREPROSTINIL
     Dosage: 4.5 UNK, UNK
     Route: 065
  45. HYDROXYCHLOROQUINE [Concomitant]
     Active Substance: HYDROXYCHLOROQUINE
     Dosage: UNK
  46. LIDOCAINE. [Concomitant]
     Active Substance: LIDOCAINE
  47. FAMOTIDINE. [Concomitant]
     Active Substance: FAMOTIDINE
  48. MELATONIN [Concomitant]
     Active Substance: MELATONIN
  49. VANCOMYCIN [Concomitant]
     Active Substance: VANCOMYCIN

REACTIONS (39)
  - Weight decreased [Not Recovered/Not Resolved]
  - Blood albumin decreased [Not Recovered/Not Resolved]
  - Anaemia [Unknown]
  - Presyncope [Unknown]
  - Erythema [Recovered/Resolved]
  - Dyspnoea [Not Recovered/Not Resolved]
  - Dizziness [Not Recovered/Not Resolved]
  - Pulmonary hypertension [Unknown]
  - Diarrhoea [Recovering/Resolving]
  - Rhinitis [Unknown]
  - Vomiting [Not Recovered/Not Resolved]
  - Dyspnoea exertional [Not Recovered/Not Resolved]
  - Rash [Recovered/Resolved]
  - Chest pain [Recovered/Resolved]
  - Chest discomfort [Recovered/Resolved]
  - Decreased appetite [Not Recovered/Not Resolved]
  - Nausea [Not Recovered/Not Resolved]
  - Injection site erythema [Recovered/Resolved]
  - Heart rate increased [Recovered/Resolved]
  - Headache [Recovering/Resolving]
  - Palpitations [Not Recovered/Not Resolved]
  - Gastrointestinal disorder [Not Recovered/Not Resolved]
  - Cellulitis [Recovered/Resolved]
  - Hypovolaemia [Unknown]
  - Crying [Unknown]
  - Systemic lupus erythematosus [Unknown]
  - Abdominal wall disorder [Recovered/Resolved]
  - Injection site warmth [Recovered/Resolved]
  - Insomnia [Not Recovered/Not Resolved]
  - Depression [Unknown]
  - Abdominal pain [Recovered/Resolved]
  - Hospitalisation [Unknown]
  - Pleural effusion [Unknown]
  - Device infusion issue [Recovered/Resolved]
  - Hyperhidrosis [Recovered/Resolved]
  - Abdominal pain upper [Not Recovered/Not Resolved]
  - Right ventricular failure [Unknown]
  - Catheter site related reaction [Unknown]
  - Drug dose omission [Unknown]

NARRATIVE: CASE EVENT DATE: 20160309
